FAERS Safety Report 7913774-X (Version None)
Quarter: 2011Q4

REPORT INFORMATION
  Report Type: 
  Country: None (occurrence: None)
  Receive Date: 20111115
  Receipt Date: 20111108
  Transmission Date: 20120403
  Serious: Yes (Hospitalization)
  Sender: FDA-Public Use
  Company Number: BE-JNJFOC-20111012717

PATIENT
  Age: 53 Year
  Sex: Female

DRUGS (1)
  1. REMICADE [Suspect]
     Indication: CROHN'S DISEASE
     Route: 042

REACTIONS (6)
  - CALCULUS URETERIC [None]
  - VASCULITIS CEREBRAL [None]
  - CEREBRAL ISCHAEMIA [None]
  - DYSKINESIA [None]
  - HEPATIC STEATOSIS [None]
  - APHASIA [None]
